FAERS Safety Report 4714082-0 (Version None)
Quarter: 2005Q3

REPORT INFORMATION
  Report Type: 
  Country: None (occurrence: None)
  Receive Date: 20050713
  Receipt Date: 20050713
  Transmission Date: 20060218
  Serious: Yes (Other)
  Sender: FDA-Public Use
  Company Number: None

PATIENT
  Age: 56 Year
  Sex: Female
  Weight: 70.7611 kg

DRUGS (1)
  1. AUGMENTIN [Suspect]
     Indication: EAR INFECTION
     Dosage: 500 MG BID ORAL
     Route: 048
     Dates: start: 20050511, end: 20050521

REACTIONS (3)
  - CHROMATURIA [None]
  - HEPATIC FUNCTION ABNORMAL [None]
  - PRURITUS GENERALISED [None]
